FAERS Safety Report 19931283 (Version 1)
Quarter: 2021Q4

REPORT INFORMATION
  Report Type: Spontaneous
  Country: US (occurrence: US)
  Receive Date: 20211008
  Receipt Date: 20211008
  Transmission Date: 20220303
  Serious: Yes (Death, Other)
  Sender: FDA-Public Use
  Company Number: US-CIPLA LTD.-2021US06610

PATIENT

DRUGS (1)
  1. GEMCITABINE [Suspect]
     Active Substance: GEMCITABINE
     Indication: Pancreatic carcinoma
     Dosage: UNK
     Route: 065

REACTIONS (5)
  - Death [Fatal]
  - Multiple organ dysfunction syndrome [Unknown]
  - Failure to thrive [Unknown]
  - Pancytopenia [Unknown]
  - Sepsis [Unknown]
